FAERS Safety Report 7019057-7 (Version None)
Quarter: 2010Q3

REPORT INFORMATION
  Report Type: 
  Country: None (occurrence: None)
  Receive Date: 20100928
  Receipt Date: 20100921
  Transmission Date: 20110219
  Serious: Yes (Hospitalization)
  Sender: FDA-Public Use
  Company Number: A0876230A

PATIENT
  Sex: Female

DRUGS (6)
  1. MEPRON [Suspect]
     Indication: LYME DISEASE
     Dosage: 750MG TWICE PER DAY
     Route: 065
     Dates: start: 20100722
  2. ZITHROMAX [Concomitant]
     Route: 065
  3. DILANTIN [Concomitant]
     Route: 065
  4. PHENOBARBITAL [Concomitant]
     Route: 065
  5. SYNTHROID [Concomitant]
     Route: 065
  6. NEXIUM [Concomitant]
     Route: 065

REACTIONS (9)
  - ABASIA [None]
  - DERMATITIS ACNEIFORM [None]
  - FATIGUE [None]
  - HYPOAESTHESIA [None]
  - OFF LABEL USE [None]
  - PALPITATIONS [None]
  - SENSORY DISTURBANCE [None]
  - SENSORY LOSS [None]
  - THERAPEUTIC RESPONSE UNEXPECTED [None]
